FAERS Safety Report 23177120 (Version 1)
Quarter: 2023Q4

REPORT INFORMATION
  Report Type: Spontaneous
  Country: US (occurrence: US)
  Receive Date: 20231113
  Receipt Date: 20231113
  Transmission Date: 20240109
  Serious: Yes (Death, Other)
  Sender: FDA-Public Use
  Company Number: US-BRISTOL-MYERS SQUIBB COMPANY-2023-162219

PATIENT
  Age: 84 Year
  Sex: Female

DRUGS (4)
  1. REVLIMID [Suspect]
     Active Substance: LENALIDOMIDE
     Indication: Diffuse large B-cell lymphoma
     Route: 048
     Dates: start: 20230325
  2. REVLIMID [Suspect]
     Active Substance: LENALIDOMIDE
     Dates: start: 202305
  3. REVLIMID [Suspect]
     Active Substance: LENALIDOMIDE
     Dates: start: 202308
  4. REVLIMID [Suspect]
     Active Substance: LENALIDOMIDE
     Dates: start: 202310

REACTIONS (2)
  - Death [Fatal]
  - Off label use [Unknown]
